FAERS Safety Report 7909736-9 (Version None)
Quarter: 2011Q4

REPORT INFORMATION
  Report Type: 
  Country: None (occurrence: None)
  Receive Date: 20111111
  Receipt Date: 20111101
  Transmission Date: 20120403
  Serious: Yes (Death, Hospitalization)
  Sender: FDA-Public Use
  Company Number: DE-PFIZER INC-2011267823

PATIENT
  Age: 40 Year
  Sex: Female
  Weight: 70 kg

DRUGS (8)
  1. LOPERAMIDE [Concomitant]
     Indication: DIARRHOEA
     Dosage: UNK
     Dates: start: 20111011
  2. CRIZOTINIB [Suspect]
     Indication: NON-SMALL CELL LUNG CANCER
     Dosage: 200 MG, 2X/DAY
     Dates: start: 20111010, end: 20111030
  3. DEXAMETHASONE [Concomitant]
     Indication: NAUSEA
     Dosage: 4 MG, 2X/DAY
     Dates: start: 20111024, end: 20111101
  4. NADROPARIN [Concomitant]
     Indication: THROMBOSIS PROPHYLAXIS
     Dosage: UNK
     Dates: start: 20110501
  5. ONDANSETRON [Concomitant]
     Indication: NAUSEA
     Dosage: 8 MG, 1X/DAY
     Dates: start: 20111024
  6. AMOCLAN [Concomitant]
     Indication: UPPER RESPIRATORY TRACT INFECTION
     Dosage: UNK
     Dates: start: 20111010, end: 20111020
  7. IBUPROFEN [Concomitant]
     Indication: BACK PAIN
     Dosage: UNK
     Dates: start: 20111025
  8. LEVOTHYROXINE [Concomitant]
     Indication: HYPOTHYROIDISM
     Dosage: UNK
     Dates: start: 19970101

REACTIONS (2)
  - HEPATIC FAILURE [None]
  - DIARRHOEA HAEMORRHAGIC [None]
